FAERS Safety Report 5272317-2 (Version None)
Quarter: 2007Q1

REPORT INFORMATION
  Report Type: 
  Country: None (occurrence: None)
  Receive Date: 20070320
  Receipt Date: 20070320
  Transmission Date: 20070707
  Serious: Yes (Hospitalization, Disabling)
  Sender: FDA-Public Use
  Company Number: None

PATIENT
  Age: 89 Year
  Sex: Female

DRUGS (1)
  1. WARFARIN SODIUM [Suspect]
     Indication: ANTICOAGULANT THERAPY
     Dosage: 4 MG DAILY PO
     Route: 048

REACTIONS (3)
  - BURNS SECOND DEGREE [None]
  - BURNS THIRD DEGREE [None]
  - INTERNATIONAL NORMALISED RATIO INCREASED [None]
